FAERS Safety Report 21822604 (Version 1)
Quarter: 2023Q1

REPORT INFORMATION
  Report Type: Spontaneous
  Country: BR (occurrence: BR)
  Receive Date: 20230105
  Receipt Date: 20230105
  Transmission Date: 20230418
  Serious: Yes (Hospitalization, Other)
  Sender: FDA-Public Use
  Company Number: BR-TORRENT-00005887

PATIENT
  Age: 28 Year
  Sex: Female
  Weight: 68 kg

DRUGS (1)
  1. LAMOTRIGINE [Suspect]
     Active Substance: LAMOTRIGINE
     Indication: Bipolar disorder
     Dosage: 1 TABLET DAILY
     Route: 048
     Dates: start: 202207, end: 20220811

REACTIONS (10)
  - Skin lesion [Recovered/Resolved]
  - Condition aggravated [Recovered/Resolved]
  - Erythema [Recovered/Resolved]
  - Lip swelling [Recovered/Resolved]
  - Pain [Recovered/Resolved]
  - Ocular discomfort [Recovered/Resolved]
  - Corneal lesion [Recovered/Resolved]
  - Toxic epidermal necrolysis [Recovered/Resolved]
  - Blister [Recovered/Resolved]
  - Depressive symptom [Recovered/Resolved]

NARRATIVE: CASE EVENT DATE: 20220811
